FAERS Safety Report 8793514 (Version 3)
Quarter: 2013Q1

REPORT INFORMATION
  Report Type: Spontaneous
  Country: TW (occurrence: TW)
  Receive Date: 20120918
  Receipt Date: 20130123
  Transmission Date: 20140127
  Serious: Yes (Death, Hospitalization, Other)
  Sender: FDA-Public Use
  Company Number: PHHY2012TW080670

PATIENT
  Age: 57 Year
  Sex: Male

DRUGS (10)
  1. EXFORGE [Suspect]
     Indication: HYPERTENSION
     Dosage: 1 DF (VALS 160MG, AMLO 5 MG), UNK
     Dates: start: 20120629, end: 20120728
  2. EXFORGE [Suspect]
     Dosage: 1 DF (VALS 80 MG, AMLO 5 MG), UNK
     Dates: start: 20120729, end: 20120806
  3. EXFORGE [Suspect]
     Dosage: 1 DF (VALS 80 MG, AMLO 5 MG), UNK
     Dates: start: 20120807
  4. EXFORGE [Suspect]
     Dosage: 1 DF (VALS 160MG, AMLO 5 MG), UNK
     Dates: start: 20120820
  5. NOVONORM [Concomitant]
     Indication: TYPE 2 DIABETES MELLITUS
     Dosage: 2 MG, QID
     Route: 048
     Dates: start: 20120627
  6. THOIN [Concomitant]
     Indication: BRONCHITIS CHRONIC
     Dosage: 250 MG, QD
     Route: 048
     Dates: start: 20120626
  7. AMBROXOL [Concomitant]
     Indication: BRONCHITIS CHRONIC
     Dosage: 30 MG, TID
     Route: 048
     Dates: start: 20120626
  8. MEPTIN [Concomitant]
     Indication: BRONCHITIS CHRONIC
     Dosage: 25 UG, QD
     Route: 048
     Dates: start: 20120705
  9. PLAVIX [Concomitant]
  10. LOSEC [Concomitant]
     Indication: UPPER GASTROINTESTINAL HAEMORRHAGE
     Dosage: 20 MG, QD
     Route: 048
     Dates: start: 20120804

REACTIONS (5)
  - Cardiac arrest [Fatal]
  - Sinus tachycardia [Unknown]
  - Blood potassium increased [Unknown]
  - Blood urea increased [Unknown]
  - Blood creatinine increased [Unknown]
